FAERS Safety Report 10170418 (Version 4)
Quarter: 2014Q3

REPORT INFORMATION
  Report Type: Report from Study
  Country: CA (occurrence: CA)
  Receive Date: 20140513
  Receipt Date: 20140910
  Transmission Date: 20150326
  Serious: Yes (Other)
  Sender: FDA-Public Use
  Company Number: CA-JNJFOC-20140505331

PATIENT
  Age: 56 Year
  Sex: Male
  Weight: 142.1 kg

DRUGS (11)
  1. WARFARIN [Concomitant]
     Active Substance: WARFARIN
     Indication: CARDIAC MURMUR
     Route: 065
  2. METFORMIN [Concomitant]
     Active Substance: METFORMIN HYDROCHLORIDE
     Indication: TYPE 1 DIABETES MELLITUS
     Route: 065
  3. TYLENOL WITH CODEINE [Concomitant]
     Active Substance: ACETAMINOPHEN\CODEINE PHOSPHATE
     Route: 065
  4. HYDROCHLOROTHIAZIDE. [Concomitant]
     Active Substance: HYDROCHLOROTHIAZIDE
     Indication: HYPERTENSION
     Route: 065
  5. REMICADE [Suspect]
     Active Substance: INFLIXIMAB
     Indication: HIDRADENITIS
     Route: 042
     Dates: start: 20120515, end: 2014
  6. RAMIPRIL. [Concomitant]
     Active Substance: RAMIPRIL
     Indication: HYPERTENSION
     Route: 065
  7. DOXYCYCLINE. [Concomitant]
     Active Substance: DOXYCYCLINE
     Indication: HIDRADENITIS
     Dosage: TAKEN CHRONICALLY
     Route: 065
  8. NAPROXEN. [Concomitant]
     Active Substance: NAPROXEN
     Dosage: AS NECESSARY (PRN)
     Route: 065
  9. REMICADE [Suspect]
     Active Substance: INFLIXIMAB
     Indication: HIDRADENITIS
     Route: 042
  10. REMICADE [Suspect]
     Active Substance: INFLIXIMAB
     Indication: HIDRADENITIS
     Route: 042
     Dates: start: 20140402
  11. INSULIN [Concomitant]
     Active Substance: INSULIN NOS
     Indication: TYPE 1 DIABETES MELLITUS
     Route: 065

REACTIONS (4)
  - Off label use [Unknown]
  - Psoriasis [Unknown]
  - General physical condition abnormal [Unknown]
  - Tuberculosis [Not Recovered/Not Resolved]

NARRATIVE: CASE EVENT DATE: 20120515
